FAERS Safety Report 26189794 (Version 1)
Quarter: 2025Q4

REPORT INFORMATION
  Report Type: Spontaneous
  Country: US (occurrence: US)
  Receive Date: 20251223
  Receipt Date: 20251223
  Transmission Date: 20260118
  Serious: No
  Sender: WAYLIS THERAPEUTICS LLC
  Company Number: US-MMM-0Ll72XH9

PATIENT
  Sex: Female

DRUGS (1)
  1. LUNESTA [Suspect]
     Active Substance: ESZOPICLONE
     Indication: Insomnia

REACTIONS (1)
  - Drug ineffective [Unknown]
